FAERS Safety Report 5760308-4 (Version None)
Quarter: 2008Q2

REPORT INFORMATION
  Report Type: 
  Country: None (occurrence: None)
  Receive Date: 20080605
  Receipt Date: 20080602
  Transmission Date: 20081010
  Serious: Yes (Other)
  Sender: FDA-Public Use
  Company Number: US-GILEAD-2008-0016488

PATIENT
  Age: 49 Year
  Sex: Male

DRUGS (3)
  1. VIREAD [Suspect]
     Indication: HEPATITIS B
     Route: 048
     Dates: start: 20080403
  2. METHADONE HCL [Suspect]
     Dates: start: 19830101
  3. METHADONE HCL [Suspect]
     Dates: start: 20080401

REACTIONS (1)
  - TORSADE DE POINTES [None]
